FAERS Safety Report 17959247 (Version 4)
Quarter: 2023Q4

REPORT INFORMATION
  Report Type: Spontaneous
  Country: ES (occurrence: ES)
  Receive Date: 20200629
  Receipt Date: 20231201
  Transmission Date: 20240109
  Serious: Yes (Death, Other)
  Sender: FDA-Public Use
  Company Number: ES-ABBVIE-20K-144-3436071-00

PATIENT
  Age: 72 Year
  Sex: Male

DRUGS (8)
  1. LOPINAVIR\RITONAVIR [Suspect]
     Active Substance: LOPINAVIR\RITONAVIR
     Indication: COVID-19 pneumonia
     Dosage: UNK
     Route: 048
  2. AZITHROMYCIN [Suspect]
     Active Substance: AZITHROMYCIN
     Indication: Pneumonia
     Dosage: UNK
     Route: 065
  3. INTERFERON BETA-1B [Suspect]
     Active Substance: INTERFERON BETA-1B
     Indication: COVID-19 pneumonia
     Dosage: UNK
     Route: 058
  4. CEFTRIAXONE [Suspect]
     Active Substance: CEFTRIAXONE\CEFTRIAXONE SODIUM
     Indication: Pneumonia
     Dosage: UNK
     Route: 065
  5. CEFTRIAXONE [Suspect]
     Active Substance: CEFTRIAXONE\CEFTRIAXONE SODIUM
     Indication: COVID-19 pneumonia
  6. TOCILIZUMAB [Suspect]
     Active Substance: TOCILIZUMAB
     Indication: COVID-19 pneumonia
     Dosage: UNK
     Route: 065
  7. HYDROXYCHLOROQUINE [Suspect]
     Active Substance: HYDROXYCHLOROQUINE
     Indication: Pneumonia
     Dosage: UNK
     Route: 065
  8. HYDROXYCHLOROQUINE [Suspect]
     Active Substance: HYDROXYCHLOROQUINE
     Indication: COVID-19 pneumonia

REACTIONS (14)
  - Death [Fatal]
  - Thrombosis [Fatal]
  - Peripheral arterial occlusive disease [Fatal]
  - Hypertransaminasaemia [Fatal]
  - Cough [Fatal]
  - Secretion discharge [Fatal]
  - Obstructive airways disorder [Fatal]
  - Hepatitis toxic [Fatal]
  - Ischaemia [Fatal]
  - Hyperbilirubinaemia [Fatal]
  - Pyrexia [Fatal]
  - Electrocardiogram QT prolonged [Fatal]
  - Dyspnoea [Fatal]
  - Off label use [Fatal]
